FAERS Safety Report 7439677-5 (Version None)
Quarter: 2011Q2

REPORT INFORMATION
  Report Type: 
  Country: None (occurrence: None)
  Receive Date: 20110427
  Receipt Date: 20110414
  Transmission Date: 20111010
  Serious: Yes (Other)
  Sender: FDA-Public Use
  Company Number: PHHY2011BR31854

PATIENT
  Sex: Female

DRUGS (6)
  1. CLOPIDOGREL [Concomitant]
  2. GLIMEPIRIDE [Concomitant]
  3. DIOVAN HCT [Suspect]
     Dosage: 320 MG VALS AND 12.5 MG HCT
     Route: 048
  4. SELOZOK [Concomitant]
     Dosage: 25 MG, UNK
  5. DIOVAN HCT [Suspect]
     Dosage: 160 MG VALS AND 12.5 MG HDYR
     Route: 048
  6. SUSTRATE [Concomitant]

REACTIONS (7)
  - BLOOD GLUCOSE INCREASED [None]
  - DIABETES MELLITUS [None]
  - BLOOD PRESSURE FLUCTUATION [None]
  - BLOOD CHOLESTEROL ABNORMAL [None]
  - SERUM FERRITIN ABNORMAL [None]
  - BLOOD IRON INCREASED [None]
  - MALAISE [None]
